FAERS Safety Report 24012902 (Version 2)
Quarter: 2024Q3

REPORT INFORMATION
  Report Type: Report from Study
  Country: PK (occurrence: PK)
  Receive Date: 20240626
  Receipt Date: 20240712
  Transmission Date: 20241017
  Serious: Yes (Other)
  Sender: ROCHE
  Company Number: PK-ROCHE-10000008597

PATIENT
  Age: 36 Year
  Sex: Female

DRUGS (3)
  1. HERCEPTIN [Suspect]
     Active Substance: TRASTUZUMAB
     Indication: Breast cancer metastatic
     Route: 057
     Dates: start: 20240610
  2. HERCEPTIN [Suspect]
     Active Substance: TRASTUZUMAB
     Route: 057
  3. HERCEPTIN [Suspect]
     Active Substance: TRASTUZUMAB
     Route: 057

REACTIONS (1)
  - Metastasis [Unknown]

NARRATIVE: CASE EVENT DATE: 20240610
